FAERS Safety Report 21542086 (Version 2)
Quarter: 2022Q4

REPORT INFORMATION
  Report Type: Spontaneous
  Country: US (occurrence: US)
  Receive Date: 20221102
  Receipt Date: 20221201
  Transmission Date: 20230112
  Serious: Yes (Other)
  Sender: FDA-Public Use
  Company Number: US-PFIZER INC-PV202200093627

PATIENT
  Age: 73 Year
  Sex: Male

DRUGS (1)
  1. EUCRISA [Suspect]
     Active Substance: CRISABOROLE
     Indication: Rosacea
     Dosage: UNK, 2X/DAY (APPLY TO AFFECTED AREAS TWICE DAILY)

REACTIONS (8)
  - Macular hole [Unknown]
  - Depressed mood [Unknown]
  - Burning sensation [Unknown]
  - Pruritus [Unknown]
  - Swelling face [Unknown]
  - Erythema [Unknown]
  - Photosensitivity reaction [Unknown]
  - Off label use [Unknown]
